FAERS Safety Report 7630278-2 (Version None)
Quarter: 2011Q3

REPORT INFORMATION
  Report Type: 
  Country: None (occurrence: None)
  Receive Date: 20110722
  Receipt Date: 20110713
  Transmission Date: 20111222
  Serious: Yes (Other)
  Sender: FDA-Public Use
  Company Number: PHHY2011DE63411

PATIENT
  Age: 71 Year

DRUGS (5)
  1. RIFAMPICIN [Suspect]
     Indication: TUBERCULOSIS BLADDER
  2. ETHAMBUTOL HYDROCHLORIDE [Concomitant]
     Indication: TUBERCULOSIS BLADDER
  3. BISOPROLOL FUMARATE [Interacting]
     Indication: TUBERCULOSIS BLADDER
     Dosage: 3.75 MG, UNK
  4. BISOPROLOL FUMARATE [Interacting]
     Dosage: 3.75MG IN THE MORNING (1 TABLET), AND 1.75MG IN THE EVENING (1/2 TABLET)
  5. ISONIAZID [Concomitant]
     Indication: TUBERCULOSIS BLADDER

REACTIONS (3)
  - BLOOD PRESSURE INCREASED [None]
  - VENTRICULAR EXTRASYSTOLES [None]
  - DRUG INTERACTION [None]
